FAERS Safety Report 5591841-6 (Version None)
Quarter: 2008Q1

REPORT INFORMATION
  Report Type: 
  Country: None (occurrence: None)
  Receive Date: 20080115
  Receipt Date: 20080114
  Transmission Date: 20080703
  Serious: Yes (Other)
  Sender: FDA-Public Use
  Company Number: B0502312A

PATIENT
  Age: 78 Year
  Sex: Male

DRUGS (1)
  1. SUPACEF [Suspect]
     Indication: DRUG USE FOR UNKNOWN INDICATION
     Route: 065

REACTIONS (2)
  - HYPERBILIRUBINAEMIA [None]
  - PHARMACEUTICAL PRODUCT COMPLAINT [None]
